FAERS Safety Report 20860672 (Version 1)
Quarter: 2022Q2

REPORT INFORMATION
  Report Type: Report from Study
  Country: US (occurrence: US)
  Receive Date: 20220523
  Receipt Date: 20220523
  Transmission Date: 20220721
  Serious: Yes (Death, Hospitalization, Other)
  Sender: FDA-Public Use
  Company Number: US-BRISTOL-MYERS SQUIBB COMPANY-2022-010029

PATIENT
  Age: 60 Year
  Sex: Female
  Weight: 77.9 kg

DRUGS (5)
  1. NIVOLUMAB [Suspect]
     Active Substance: NIVOLUMAB
     Indication: Malignant melanoma
     Dosage: DAY 1 OF EACH CYCLE (CYCLE LENGTH  28 DAYS)
     Route: 042
     Dates: start: 20211109, end: 20211109
  2. ENCORAFENIB [Suspect]
     Active Substance: ENCORAFENIB
     Indication: Malignant melanoma
     Dosage: (DAYS 1-28 OF EACH CYCLES)COURSE 1 OF TREATMENT ENDED ON 06DEC2021 FOR BOTH BINIMETINIB AND ENCORAFE
     Dates: start: 20211109, end: 20211206
  3. ENCORAFENIB [Suspect]
     Active Substance: ENCORAFENIB
     Dosage: COURSE 1 OF TREATMENT ENDED ON 06DEC2021 FOR BOTH BINIMETINIB AND ENCORAFENIB. 07DEC2021 WAS CYCLE 2
     Dates: start: 20211223, end: 20220106
  4. BINIMETINIB [Suspect]
     Active Substance: BINIMETINIB
     Indication: Malignant melanoma
     Dosage: DAYS 1 TO 28 OF CYCLE, COURSE 1 OF TREATMENT ENDED ON 06DEC2021 FOR BOTH BINIMETINIB AND ENCORAFENIB
     Dates: start: 20211109, end: 20211206
  5. BINIMETINIB [Suspect]
     Active Substance: BINIMETINIB
     Dosage: COURSE 1 OF TREATMENT ENDED ON 06DEC2021 FOR BOTH BINIMETINIB AND ENCORAFENIB. 07DEC2021 WAS CYCLE 2
     Dates: start: 20211223, end: 20220118

REACTIONS (11)
  - Hypotension [Recovered/Resolved]
  - Acute respiratory failure [Recovered/Resolved]
  - Muscular weakness [Not Recovered/Not Resolved]
  - Dyspnoea [Recovered/Resolved]
  - Urinary tract infection [Not Recovered/Not Resolved]
  - Fatigue [Not Recovered/Not Resolved]
  - Alanine aminotransferase increased [Fatal]
  - Aspartate aminotransferase increased [Fatal]
  - Encephalopathy [Fatal]
  - Rash maculo-papular [Not Recovered/Not Resolved]
  - Malignant neoplasm progression [Fatal]

NARRATIVE: CASE EVENT DATE: 20211208
